FAERS Safety Report 7422615-9 (Version None)
Quarter: 2011Q2

REPORT INFORMATION
  Report Type: 
  Country: None (occurrence: None)
  Receive Date: 20110419
  Receipt Date: 20110412
  Transmission Date: 20111010
  Serious: Yes (Death)
  Sender: FDA-Public Use
  Company Number: JP-ELI_LILLY_AND_COMPANY-JP201104003514

PATIENT
  Age: 70 Year
  Sex: Female

DRUGS (33)
  1. METFORMIN [Concomitant]
     Dosage: 500 MG, UNK
     Dates: start: 20110109
  2. PURSENNID [Concomitant]
     Dosage: 3 DF, UNK
     Route: 048
  3. VICTOZA [Concomitant]
     Dosage: 0.9 MG, UNK
     Dates: start: 20101124
  4. AMARYL [Concomitant]
     Dosage: 1 MG, UNK
     Dates: start: 20101105
  5. BLOPRESS [Concomitant]
     Dosage: 12 MG, UNK
     Route: 048
  6. DIART [Concomitant]
     Dosage: 60 MG, UNK
     Route: 048
  7. METFORMIN HCL [Concomitant]
     Dosage: 500 MG, UNK
     Route: 048
  8. ASPIRIN [Concomitant]
     Dosage: 1 DF, UNK
     Route: 048
  9. SELBEX [Concomitant]
     Dosage: 1 DF, UNK
     Route: 048
  10. CRESTOR [Concomitant]
     Dosage: 2.5 MG, UNK
     Route: 048
  11. AMARYL [Concomitant]
     Dosage: 1 MG, UNK
     Dates: start: 20110109
  12. ZETIA [Concomitant]
     Dosage: 10 MG, UNK
     Route: 048
  13. ALDACTONE [Concomitant]
     Dosage: 25 MG, UNK
     Route: 048
  14. ADONA [Concomitant]
  15. MAGNESIUM OXIDE [Concomitant]
     Dosage: 2 G, UNK
     Route: 048
  16. NICORANTA [Concomitant]
     Dosage: 3 DF, UNK
     Route: 048
  17. IRBETAN [Concomitant]
     Dosage: 100 MG, UNK
  18. MYONAL [Concomitant]
     Dosage: 1 DF, UNK
     Route: 048
  19. BYETTA [Suspect]
     Indication: DIABETES MELLITUS
     Dosage: 5 UG, BID
     Route: 058
     Dates: start: 20110331
  20. KETOPROFEN [Concomitant]
     Dosage: UNK
  21. LAXOBERON [Concomitant]
     Indication: CONSTIPATION
     Dosage: 20 UNK, UNK
     Route: 048
  22. ARTIST [Concomitant]
     Dosage: 1.25 MG, UNK
  23. ACTOS [Concomitant]
     Dosage: 15 MG, UNK
  24. SEIBULE [Concomitant]
     Dosage: 150 MG, UNK
  25. NORVASC [Concomitant]
     Dosage: 5 MG, UNK
     Route: 048
  26. SENNOSIDE [Concomitant]
     Indication: CONSTIPATION
     Dosage: 4 DF, UNK
     Route: 048
  27. LENDORMIN [Concomitant]
     Dosage: 0.25 MG, UNK
     Route: 048
  28. PANTOSIN [Concomitant]
     Dosage: 0.6 G, UNK
     Route: 048
  29. VICTOZA [Concomitant]
     Indication: DIABETES MELLITUS
     Dosage: UNK
     Dates: start: 20101105
  30. AMARYL [Concomitant]
     Dosage: 0.5 MG, UNK
     Dates: start: 20101124
  31. TAKEPRON [Concomitant]
     Dosage: 15 MG, UNK
     Route: 048
  32. VOLTAREN                                /SCH/ [Concomitant]
     Dosage: 1 DF, UNK
     Route: 048
  33. CARNACULIN [Concomitant]

REACTIONS (1)
  - MYOCARDIAL ISCHAEMIA [None]
